FAERS Safety Report 9431887 (Version 1)
Quarter: 2013Q3

REPORT INFORMATION
  Report Type: Spontaneous
  Country: CA (occurrence: CA)
  Receive Date: 20130731
  Receipt Date: 20130731
  Transmission Date: 20140515
  Serious: Yes (Other)
  Sender: FDA-Public Use
  Company Number: PHHY2013CA080221

PATIENT
  Age: 64 Year
  Sex: Male

DRUGS (7)
  1. TASIGNA [Suspect]
     Indication: CHRONIC MYELOID LEUKAEMIA
     Dosage: 400 MG, BID
     Route: 048
     Dates: start: 20090626
  2. DIOVAN [Concomitant]
  3. INSULIN NOVO RAPITARD [Concomitant]
     Dosage: UNK
     Route: 058
  4. NOVOLIN [Concomitant]
     Route: 058
  5. SYNTHROID [Concomitant]
     Dosage: 0.137 MG, DIE
  6. ASAPHEN [Concomitant]
     Dosage: 80 MG, DIE
  7. COUMADINE [Concomitant]

REACTIONS (5)
  - Peripheral arterial occlusive disease [Not Recovered/Not Resolved]
  - Pedal pulse decreased [Not Recovered/Not Resolved]
  - Intermittent claudication [Not Recovered/Not Resolved]
  - Erectile dysfunction [Not Recovered/Not Resolved]
  - Muscle spasms [Not Recovered/Not Resolved]
